FAERS Safety Report 10375333 (Version 6)
Quarter: 2014Q3

REPORT INFORMATION
  Report Type: Spontaneous
  Country: JP (occurrence: JP)
  Receive Date: 20140811
  Receipt Date: 20140926
  Transmission Date: 20150326
  Serious: Yes (Life-Threatening, Hospitalization)
  Sender: FDA-Public Use
  Company Number: JP-ELI_LILLY_AND_COMPANY-JP201407010950

PATIENT
  Age: 82 Year
  Sex: Female

DRUGS (5)
  1. NITOROL [Concomitant]
     Active Substance: ISOSORBIDE DINITRATE
     Dosage: 20 MG, BID
     Route: 048
     Dates: start: 2013
  2. MAGNESIUM OXIDE. [Concomitant]
     Active Substance: MAGNESIUM OXIDE
     Dosage: UNK
     Route: 048
  3. OLMETEC [Concomitant]
     Active Substance: OLMESARTAN MEDOXOMIL
     Dosage: 20 MG, QD
     Route: 048
     Dates: start: 2013
  4. FORTEO [Suspect]
     Active Substance: TERIPARATIDE
     Indication: OSTEOPOROSIS
     Dosage: 20 UG, QD
     Route: 058
     Dates: start: 201405, end: 20140704
  5. CEROCRAL [Concomitant]
     Active Substance: IFENPRODIL
     Dosage: 20 MG, TID
     Route: 048
     Dates: start: 2013

REACTIONS (6)
  - Altered state of consciousness [Recovering/Resolving]
  - Disuse syndrome [Unknown]
  - Convulsion [Recovering/Resolving]
  - Renal impairment [Recovering/Resolving]
  - Hypercalcaemia [Recovered/Resolved]
  - Parkinsonism [Unknown]

NARRATIVE: CASE EVENT DATE: 20140617
